FAERS Safety Report 5449196-3 (Version None)
Quarter: 2007Q3

REPORT INFORMATION
  Report Type: 
  Country: None (occurrence: None)
  Receive Date: 20070911
  Receipt Date: 20070828
  Transmission Date: 20080115
  Serious: No
  Sender: FDA-Public Use
  Company Number: US-BOEHRINGER INGELHEIM PHARMACEUTICALS, INC.-2007-BP-17114BP

PATIENT
  Age: 83 Year
  Sex: Male

DRUGS (9)
  1. FLOMAX [Suspect]
     Indication: BENIGN PROSTATIC HYPERPLASIA
     Route: 048
     Dates: start: 19980101, end: 19980101
  2. OMEPRAZOLE [Concomitant]
  3. ADVIL LIQUI-GELS [Concomitant]
     Indication: JOINT INJURY
  4. TYLENOL (CAPLET) [Concomitant]
     Indication: JOINT INJURY
  5. ASPIRIN [Concomitant]
     Indication: JOINT INJURY
  6. LESCOL [Concomitant]
  7. UROXATRAL [Concomitant]
  8. PROCAR [Concomitant]
  9. LISINOPRIL [Concomitant]

REACTIONS (2)
  - DIZZINESS [None]
  - MIDDLE INSOMNIA [None]
